FAERS Safety Report 7241654-4 (Version None)
Quarter: 2011Q1

REPORT INFORMATION
  Report Type: 
  Country: None (occurrence: None)
  Receive Date: 20110124
  Receipt Date: 20110112
  Transmission Date: 20110831
  Serious: Yes (Other)
  Sender: FDA-Public Use
  Company Number: PHHY2010DE86440

PATIENT
  Sex: Male

DRUGS (15)
  1. CLOPIDOGREL [Concomitant]
     Route: 048
  2. RABEPRAZOLE SODIUM [Concomitant]
  3. ASPIRIN [Concomitant]
     Route: 048
  4. METRONIDAZOLE [Concomitant]
  5. ACETYLCYSTEINE [Concomitant]
  6. FLUCONAZOLE [Concomitant]
  7. CIPROFLOXACIN [Concomitant]
     Route: 048
  8. BISOPROLOL [Concomitant]
     Route: 048
  9. RAMIPRIL [Suspect]
     Route: 048
  10. MOVICOL [Concomitant]
  11. MOXIFLOXACIN [Concomitant]
  12. SIMVASTATIN [Concomitant]
  13. DORIPENEM [Concomitant]
  14. LINEZOLID [Concomitant]
  15. RASILEZ [Suspect]
     Indication: HYPERTENSION
     Dosage: 300 MG, UNK
     Route: 048
     Dates: start: 20101201

REACTIONS (1)
  - GLOMERULAR FILTRATION RATE DECREASED [None]
